FAERS Safety Report 21259862 (Version 1)
Quarter: 2022Q3

REPORT INFORMATION
  Report Type: Spontaneous
  Country: FR (occurrence: None)
  Receive Date: 20220826
  Receipt Date: 20220826
  Transmission Date: 20221026
  Serious: Yes (Other)
  Sender: FDA-Public Use
  Company Number: 2022A291218

PATIENT
  Age: 75 Year
  Sex: Female

DRUGS (7)
  1. TICAGRELOR [Suspect]
     Active Substance: TICAGRELOR
     Indication: Myocardial infarction
     Route: 048
     Dates: start: 20220705
  2. RAMIPRIL [Suspect]
     Active Substance: RAMIPRIL
     Indication: Myocardial infarction
     Route: 048
     Dates: start: 20220705
  3. PANTOPRAZOLE [Suspect]
     Active Substance: PANTOPRAZOLE
     Indication: Prophylaxis against gastrointestinal ulcer
     Route: 048
     Dates: start: 20220705, end: 20220811
  4. KARDEGIC [Suspect]
     Active Substance: ASPIRIN DL-LYSINE
     Indication: Myocardial infarction
     Route: 048
     Dates: start: 20220705
  5. BISOPROLOL FUMARATE [Suspect]
     Active Substance: BISOPROLOL FUMARATE
     Indication: Myocardial infarction
     Route: 048
     Dates: start: 20220705
  6. ATORVASTATIN [Suspect]
     Active Substance: ATORVASTATIN
     Indication: Myocardial infarction
     Route: 048
     Dates: start: 20220705, end: 20220812
  7. VENLAFAXINE [Concomitant]
     Active Substance: VENLAFAXINE HYDROCHLORIDE
     Route: 048

REACTIONS (2)
  - Eosinophilia [Recovering/Resolving]
  - Cholestatic liver injury [Recovering/Resolving]

NARRATIVE: CASE EVENT DATE: 20220807
